FAERS Safety Report 25092763 (Version 1)
Quarter: 2025Q1

REPORT INFORMATION
  Report Type: Spontaneous
  Country: JP (occurrence: JP)
  Receive Date: 20250319
  Receipt Date: 20250319
  Transmission Date: 20250409
  Serious: Yes (Other)
  Sender: MERCK SHARP & DOHME LLC
  Company Number: JP-009507513-2265931

PATIENT
  Age: 7 Decade
  Sex: Male

DRUGS (1)
  1. KEYTRUDA [Suspect]
     Active Substance: PEMBROLIZUMAB
     Indication: Non-small cell lung cancer stage IIIA
     Dosage: DOSAGE: 200 MG 200 MG, EVERY 3 WEEKS
     Route: 041
     Dates: start: 202402

REACTIONS (2)
  - Thrombophlebitis migrans [Unknown]
  - Renal impairment [Unknown]

NARRATIVE: CASE EVENT DATE: 20250101
